FAERS Safety Report 5138299-9 (Version None)
Quarter: 2006Q4

REPORT INFORMATION
  Report Type: 
  Country: None (occurrence: None)
  Receive Date: 20061030
  Receipt Date: 20060816
  Transmission Date: 20070319
  Serious: No
  Sender: FDA-Public Use
  Company Number: US-GLAXOSMITHKLINE-A0616961A

PATIENT
  Age: 62 Year
  Sex: Male

DRUGS (6)
  1. ADVAIR HFA [Suspect]
     Indication: CHRONIC OBSTRUCTIVE PULMONARY DISEASE
     Dosage: 250MCG TWICE PER DAY
     Route: 055
  2. SPIRIVA [Concomitant]
  3. VITAMIN [Concomitant]
  4. FOLIC ACID [Concomitant]
  5. PROTONIX [Concomitant]
  6. MECLIZINE [Concomitant]

REACTIONS (2)
  - CANDIDIASIS [None]
  - GLOSSODYNIA [None]
